FAERS Safety Report 15703299 (Version 1)
Quarter: 2018Q4

REPORT INFORMATION
  Report Type: Spontaneous
  Country: FR (occurrence: FR)
  Receive Date: 20181210
  Receipt Date: 20181210
  Transmission Date: 20190205
  Serious: Yes (Other)
  Sender: FDA-Public Use
  Company Number: FR-TAKEDA-2018TUS034716

PATIENT
  Age: 47 Year
  Sex: Female

DRUGS (1)
  1. ENTYVIO [Suspect]
     Active Substance: VEDOLIZUMAB
     Indication: CROHN^S DISEASE
     Dosage: UNK
     Route: 042
     Dates: start: 20181002

REACTIONS (5)
  - Conjunctivitis [Recovering/Resolving]
  - Paradoxical drug reaction [Recovering/Resolving]
  - Eczema infected [Recovering/Resolving]
  - Eczema [Recovering/Resolving]
  - Cheilitis [Recovering/Resolving]

NARRATIVE: CASE EVENT DATE: 20181024
